FAERS Safety Report 12959267 (Version 1)
Quarter: 2016Q4

REPORT INFORMATION
  Report Type: Spontaneous
  Country: US (occurrence: US)
  Receive Date: 20161118
  Receipt Date: 20161118
  Transmission Date: 20170207
  Serious: Yes (Death)
  Sender: FDA-Public Use
  Company Number: None

PATIENT
  Age: 64 Year
  Sex: Female
  Weight: 80.9 kg

DRUGS (1)
  1. MEMANTINE HYDROCHLORIDE. [Suspect]
     Active Substance: MEMANTINE HYDROCHLORIDE
     Dates: end: 20161103

REACTIONS (6)
  - Atrial fibrillation [None]
  - Respiratory failure [None]
  - Sepsis [None]
  - Pneumonia [None]
  - Metastases to lung [None]
  - Malignant neoplasm progression [None]

NARRATIVE: CASE EVENT DATE: 20161110
